FAERS Safety Report 21715531 (Version 1)
Quarter: 2022Q4

REPORT INFORMATION
  Report Type: Spontaneous
  Country: US (occurrence: None)
  Receive Date: 20221211
  Receipt Date: 20221211
  Transmission Date: 20230113
  Serious: No
  Sender: FDA-Public Use
  Company Number: None

PATIENT
  Age: 41 Day
  Sex: Female

DRUGS (6)
  1. VYLEESI [Suspect]
     Active Substance: BREMELANOTIDE ACETATE
     Dates: start: 20221209, end: 20221210
  2. ALAZOPRAM [Concomitant]
  3. TRINTELLIX [Concomitant]
     Active Substance: VORTIOXETINE HYDROBROMIDE
  4. MACROBID [Concomitant]
     Active Substance: NITROFURANTOIN\NITROFURANTOIN MONOHYDRATE
  5. LO LOESTRIN FE [Concomitant]
     Active Substance: ETHINYL ESTRADIOL\NORETHINDRONE ACETATE
  6. ALLEGRA-D [Concomitant]
     Active Substance: FEXOFENADINE HYDROCHLORIDE\PSEUDOEPHEDRINE HYDROCHLORIDE

REACTIONS (3)
  - Erythema [None]
  - Pruritus [None]
  - Peripheral swelling [None]

NARRATIVE: CASE EVENT DATE: 20221210
